FAERS Safety Report 11005293 (Version 3)
Quarter: 2015Q2

REPORT INFORMATION
  Report Type: Spontaneous
  Country: FR (occurrence: FR)
  Receive Date: 20150409
  Receipt Date: 20150428
  Transmission Date: 20150821
  Serious: Yes (Hospitalization)
  Sender: FDA-Public Use
  Company Number: FR-ACTAVIS-2015-07761

PATIENT
  Age: 51 Year
  Sex: Female

DRUGS (10)
  1. PACLITAXEL ACTAVIS [Suspect]
     Active Substance: PACLITAXEL
     Indication: OVARIAN CANCER
     Dosage: 6 MG/ML, CYCLICAL, FOR 3H ON 01 DEC AND 22 DEC 2014
     Route: 042
     Dates: start: 20141201, end: 20141222
  2. TAXOL [Suspect]
     Active Substance: PACLITAXEL
     Indication: OVARIAN CANCER
     Dosage: UNK UNK, UNKNOWN, THIRD CYCLE
     Route: 065
     Dates: start: 20141222
  3. AVASTIN [Suspect]
     Active Substance: BEVACIZUMAB
     Indication: OVARIAN CANCER
     Dosage: UNK UNK, UNKNOWN, THIRD CYCLE
     Route: 065
     Dates: start: 20141222
  4. ONDANSETRON AGUETTANT [Concomitant]
     Active Substance: ONDANSETRON
     Indication: PRODUCT USED FOR UNKNOWN INDICATION
     Dosage: UNK UNK, UNKNOWN
     Route: 065
  5. AZANTAC [Concomitant]
     Active Substance: RANITIDINE HYDROCHLORIDE
     Indication: PRODUCT USED FOR UNKNOWN INDICATION
     Dosage: UNK UNK, UNKNOWN
     Route: 065
  6. SOLU-MEDROL [Concomitant]
     Active Substance: METHYLPREDNISOLONE SODIUM SUCCINATE
     Indication: PRODUCT USED FOR UNKNOWN INDICATION
     Dosage: UNK UNK, UNKNOWN
     Route: 065
  7. CARBOPLATINE [Suspect]
     Active Substance: CARBOPLATIN
     Indication: OVARIAN CANCER
     Dosage: 10 MG/ML, CYCLICAL, FOR 1H ON 01 DEC AND 22 DEC 2014
     Route: 042
     Dates: start: 20141201, end: 20141222
  8. CARBOPLATIN (UNKNOWN) [Suspect]
     Active Substance: CARBOPLATIN
     Indication: OVARIAN CANCER
     Dosage: UNK UNK, UNKNOWN, THIRD CYCLE
     Route: 065
     Dates: start: 20141222
  9. POLARAMINE [Concomitant]
     Active Substance: DEXCHLORPHENIRAMINE MALEATE
     Indication: PRODUCT USED FOR UNKNOWN INDICATION
     Dosage: UNK UNK, UNKNOWN
     Route: 065
  10. AVASTIN [Suspect]
     Active Substance: BEVACIZUMAB
     Dosage: 1250 MG, CYCLICAL, FOR 1H30 ON 01 DEC AND 22 DEC 2014
     Route: 042
     Dates: start: 20141201, end: 20141222

REACTIONS (7)
  - Abdominal pain upper [Recovered/Resolved]
  - Dyspnoea [Recovered/Resolved]
  - Malaise [Recovered/Resolved]
  - Pallor [Recovered/Resolved]
  - Dysphagia [Recovered/Resolved]
  - Nausea [Recovered/Resolved]
  - Rash [Recovered/Resolved]

NARRATIVE: CASE EVENT DATE: 20141201
